FAERS Safety Report 22519853 (Version 1)
Quarter: 2023Q2

REPORT INFORMATION
  Report Type: Spontaneous
  Country: BR (occurrence: None)
  Receive Date: 20230605
  Receipt Date: 20230605
  Transmission Date: 20230722
  Serious: Yes (Other)
  Sender: FDA-Public Use
  Company Number: BR-Merck Healthcare KGaA-9405702

PATIENT
  Age: 21 Year
  Sex: Female

DRUGS (2)
  1. CLADRIBINE [Suspect]
     Active Substance: CLADRIBINE
     Indication: Multiple sclerosis
     Dosage: YEAR ONE MONTH ONE THERAPY
     Route: 048
     Dates: start: 202301
  2. CLADRIBINE [Suspect]
     Active Substance: CLADRIBINE
     Dosage: YEAR ONE MONTH TWO THERAPY
     Route: 048
     Dates: start: 202302

REACTIONS (8)
  - Pulmonary histoplasmosis [Recovering/Resolving]
  - Pleural effusion [Recovering/Resolving]
  - Pleurisy [Unknown]
  - Pulmonary mass [Not Recovered/Not Resolved]
  - Pyrexia [Recovering/Resolving]
  - Pleuritic pain [Recovering/Resolving]
  - Alopecia [Unknown]
  - Multiple sclerosis relapse [Recovering/Resolving]

NARRATIVE: CASE EVENT DATE: 20230301
